FAERS Safety Report 6709180-6 (Version None)
Quarter: 2010Q2

REPORT INFORMATION
  Report Type: 
  Country: None (occurrence: None)
  Receive Date: 20100504
  Receipt Date: 20100422
  Transmission Date: 20101027
  Serious: Yes (Other)
  Sender: FDA-Public Use
  Company Number: AR-TYCO HEALTHCARE/MALLINCKRODT-T201001087

PATIENT
  Age: 70 Year
  Sex: Female

DRUGS (2)
  1. SODIUM IODIDE I 131 [Suspect]
     Indication: TOXIC NODULAR GOITRE
     Dosage: 30 MCI
  2. SODIUM IODIDE I 131 [Suspect]
     Dosage: 30 MCI

REACTIONS (3)
  - BASEDOW'S DISEASE [None]
  - HYPOTHYROIDISM [None]
  - NECK PAIN [None]
